FAERS Safety Report 25205770 (Version 1)
Quarter: 2025Q2

REPORT INFORMATION
  Report Type: Spontaneous
  Country: FR (occurrence: FR)
  Receive Date: 20250417
  Receipt Date: 20250417
  Transmission Date: 20250717
  Serious: Yes (Hospitalization, Other)
  Sender: CHEPLAPHARM
  Company Number: None

PATIENT
  Age: 50 Year
  Sex: Female

DRUGS (11)
  1. OLANZAPINE [Suspect]
     Active Substance: OLANZAPINE
     Indication: Antipsychotic therapy
     Dosage: DAILY DOSE: 10 MILLIGRAM
     Route: 048
     Dates: start: 202405, end: 202412
  2. OLANZAPINE [Suspect]
     Active Substance: OLANZAPINE
     Indication: Antipsychotic therapy
     Dosage: DAILY DOSE: 20 MILLIGRAM
     Route: 048
     Dates: start: 202501, end: 20250109
  3. ENOXAPARIN [Concomitant]
     Active Substance: ENOXAPARIN
  4. NICOTINE [Concomitant]
     Active Substance: NICOTINE
     Dosage: 21 MG/24H?DAILY DOSE: 21 MILLIGRAM
  5. FOLIC ACID [Concomitant]
     Active Substance: FOLIC ACID
     Dosage: CPR 0-1-0?DAILY DOSE: 1 DOSAGE FORM
  6. CLOBAZAM [Concomitant]
     Active Substance: CLOBAZAM
     Dosage: CPR 0-0-0.5?DAILY DOSE: 0.5 DOSAGE FORM
  7. BUPRENORPHINE [Concomitant]
     Active Substance: BUPRENORPHINE
     Dosage: CPR 1-0-0?DAILY DOSE: 1 DOSAGE FORM
  8. LACOSAMIDE [Concomitant]
     Active Substance: LACOSAMIDE
     Dosage: CPR 1-0-2?DAILY DOSE: 3 DOSAGE FORM
  9. LEVETIRACETAM [Concomitant]
     Active Substance: LEVETIRACETAM
     Dosage: CPR 1-1-1?DAILY DOSE: 3 DOSAGE FORM
  10. VALPROATE SODIUM [Concomitant]
     Active Substance: VALPROATE SODIUM
     Dosage: CPR 1-0-1?DAILY DOSE: 2 DOSAGE FORM
  11. VALPROATE SODIUM [Concomitant]
     Active Substance: VALPROATE SODIUM
     Dosage: CPR 1-0-1?DAILY DOSE: 2 DOSAGE FORM

REACTIONS (11)
  - Inappropriate antidiuretic hormone secretion [Recovered/Resolved]
  - Fall [Unknown]
  - Craniocerebral injury [Unknown]
  - Disorientation [Unknown]
  - Hepatic cytolysis [Unknown]
  - Metabolic encephalopathy [Unknown]
  - Coma [Unknown]
  - Motor dysfunction [Unknown]
  - Pneumonia staphylococcal [Unknown]
  - Hyponatraemia [Unknown]
  - Pyrexia [Unknown]

NARRATIVE: CASE EVENT DATE: 20250109
